FAERS Safety Report 17676609 (Version 1)
Quarter: 2020Q2

REPORT INFORMATION
  Report Type: Spontaneous
  Country: US (occurrence: US)
  Receive Date: 20200416
  Receipt Date: 20200416
  Transmission Date: 20200714
  Serious: Yes (Disabling, Other)
  Sender: FDA-Public Use
  Company Number: US-ABBVIE-20K-163-3362957-00

PATIENT
  Sex: Male
  Weight: 68.1 kg

DRUGS (2)
  1. KALETRA [Suspect]
     Active Substance: LOPINAVIR\RITONAVIR
     Indication: HIV INFECTION
     Dosage: 200/50MG
     Route: 048
  2. ABACAVIR. [Concomitant]
     Active Substance: ABACAVIR
     Indication: HIV INFECTION

REACTIONS (16)
  - Tongue disorder [Not Recovered/Not Resolved]
  - Rectal haemorrhage [Recovered/Resolved]
  - Tongue neoplasm malignant stage unspecified [Not Recovered/Not Resolved]
  - Cerebrovascular accident [Recovered/Resolved with Sequelae]
  - Gait disturbance [Not Recovered/Not Resolved]
  - Blood cholesterol increased [Not Recovered/Not Resolved]
  - Haemorrhoids [Recovered/Resolved]
  - Weight decreased [Not Recovered/Not Resolved]
  - Dysphagia [Not Recovered/Not Resolved]
  - Transient ischaemic attack [Recovered/Resolved]
  - Diabetes mellitus [Not Recovered/Not Resolved]
  - Rectal cancer [Not Recovered/Not Resolved]
  - Hypertension [Recovering/Resolving]
  - Oropharyngeal pain [Not Recovered/Not Resolved]
  - Medication error [Recovered/Resolved]
  - Fine motor skill dysfunction [Not Recovered/Not Resolved]

NARRATIVE: CASE EVENT DATE: 2018
